FAERS Safety Report 17115515 (Version 1)
Quarter: 2019Q4

REPORT INFORMATION
  Report Type: Spontaneous
  Country: US (occurrence: US)
  Receive Date: 20191112
  Receipt Date: 20191112
  Transmission Date: 20200122
  Serious: Yes (Hospitalization)
  Sender: FDA-Public Use
  Company Number: None

PATIENT
  Age: 15 Month
  Sex: Female

DRUGS (3)
  1. VITAMIN D3 [Concomitant]
     Active Substance: CHOLECALCIFEROL
  2. LASIX [Concomitant]
     Active Substance: FUROSEMIDE
  3. NORDITROPIN [Suspect]
     Active Substance: SOMATROPIN
     Indication: MULTIPLE CONGENITAL ABNORMALITIES
     Route: 058
     Dates: start: 20190109

REACTIONS (2)
  - Gastrointestinal tube insertion [None]
  - Vomiting [None]

NARRATIVE: CASE EVENT DATE: 20191007
